FAERS Safety Report 6562501-X (Version None)
Quarter: 2010Q1

REPORT INFORMATION
  Report Type: 
  Country: None (occurrence: None)
  Receive Date: 20100130
  Receipt Date: 20091104
  Transmission Date: 20100710
  Serious: No
  Sender: FDA-Public Use
  Company Number: US-ABBOTT-09P-163-0607666-00

PATIENT
  Sex: Female
  Weight: 78.542 kg

DRUGS (11)
  1. HUMIRA [Suspect]
     Indication: PSORIASIS
     Route: 058
     Dates: start: 20090914
  2. HUMIRA [Suspect]
     Indication: PSORIATIC ARTHROPATHY
  3. DIOVAN [Concomitant]
     Indication: HYPERTENSION
     Route: 048
  4. METOPROLOL [Concomitant]
     Indication: PALPITATIONS
     Dosage: 1/2 X 25MG  BID
     Route: 048
  5. SORIATANE [Concomitant]
     Indication: PSORIASIS
  6. LIPITOR [Concomitant]
     Indication: BLOOD CHOLESTEROL INCREASED
     Route: 048
  7. METFORMIN [Concomitant]
     Indication: DIABETES MELLITUS
  8. AMITRIPTYLINE HCL [Concomitant]
     Indication: SLEEP DISORDER THERAPY
     Route: 048
  9. PROZAC [Concomitant]
     Indication: DEPRESSION
     Route: 048
  10. PRILOSEC [Concomitant]
     Indication: GASTROOESOPHAGEAL REFLUX DISEASE
     Route: 048
  11. ZYRTEC [Concomitant]
     Indication: SEASONAL ALLERGY
     Route: 048

REACTIONS (1)
  - WRONG TECHNIQUE IN DRUG USAGE PROCESS [None]
